FAERS Safety Report 14280354 (Version 1)
Quarter: 2017Q4

REPORT INFORMATION
  Report Type: Spontaneous
  Country: US (occurrence: US)
  Receive Date: 20171212
  Receipt Date: 20171212
  Transmission Date: 20180321
  Serious: Yes (Disabling)
  Sender: FDA-Public Use
  Company Number: None

PATIENT
  Age: 36 Year
  Sex: Female

DRUGS (1)
  1. DERMOVATE CLOBETASOL [Suspect]
     Active Substance: CLOBETASOL PROPIONATE
     Indication: ECZEMA
     Route: 061
     Dates: start: 19901212, end: 20151201

REACTIONS (1)
  - Skin atrophy [None]
